FAERS Safety Report 14808332 (Version 1)
Quarter: 2018Q2

REPORT INFORMATION
  Report Type: Spontaneous
  Country: US (occurrence: US)
  Receive Date: 20180403
  Receipt Date: 20180403
  Transmission Date: 20180711
  Serious: Yes (Hospitalization, Other)
  Sender: FDA-Public Use
  Company Number: None

PATIENT
  Sex: Male
  Weight: 78.3 kg

DRUGS (10)
  1. VITAMIN E [Concomitant]
     Active Substance: .ALPHA.-TOCOPHEROL
  2. GLIPIZIDE. [Concomitant]
     Active Substance: GLIPIZIDE
  3. KORLYM [Suspect]
     Active Substance: MIFEPRISTONE
     Indication: CORTISOL INCREASED
     Dosage: ?          QUANTITY:30 TABLET(S);?
     Route: 048
     Dates: start: 20180222, end: 20180327
  4. MELOXCAN [Concomitant]
  5. VITAMIN D [Concomitant]
     Active Substance: CHOLECALCIFEROL
  6. KORLYM [Suspect]
     Active Substance: MIFEPRISTONE
     Indication: ADRENAL MASS
     Dosage: ?          QUANTITY:30 TABLET(S);?
     Route: 048
     Dates: start: 20180222, end: 20180327
  7. ASPIRIN. [Concomitant]
     Active Substance: ASPIRIN
  8. METFORMIN [Concomitant]
     Active Substance: METFORMIN HYDROCHLORIDE
  9. ROSUVASTATIN. [Concomitant]
     Active Substance: ROSUVASTATIN
  10. RAMIPRIL. [Concomitant]
     Active Substance: RAMIPRIL

REACTIONS (4)
  - Cognitive disorder [None]
  - Personality change [None]
  - Transient ischaemic attack [None]
  - Peripheral swelling [None]
